FAERS Safety Report 15436818 (Version 1)
Quarter: 2018Q3

REPORT INFORMATION
  Report Type: Spontaneous
  Country: US (occurrence: US)
  Receive Date: 20180927
  Receipt Date: 20180927
  Transmission Date: 20181010
  Serious: No
  Sender: FDA-Public Use
  Company Number: US-TEVA-2018-US-957409

PATIENT
  Sex: Male

DRUGS (1)
  1. LIDOCAINE W/PRILOCAINE [Suspect]
     Active Substance: LIDOCAINE\PRILOCAINE
     Indication: PAIN
     Dosage: DOSE STRENGTH:  2.5 / 2.5%
     Route: 065
     Dates: start: 201705, end: 20180910

REACTIONS (1)
  - Rash [Recovered/Resolved]

NARRATIVE: CASE EVENT DATE: 20180903
